FAERS Safety Report 10563412 (Version 3)
Quarter: 2019Q4

REPORT INFORMATION
  Report Type: Spontaneous
  Country: FR (occurrence: FR)
  Receive Date: 20141104
  Receipt Date: 20191015
  Transmission Date: 20200122
  Serious: Yes (Death, Hospitalization, Other)
  Sender: FDA-Public Use
  Company Number: FR-SA-200211594FR

PATIENT
  Age: 83 Year
  Sex: Female

DRUGS (21)
  1. ERCEFURYL [Concomitant]
     Active Substance: NIFUROXAZIDE
     Dosage: UNK
  2. IMODIUM [Concomitant]
     Active Substance: LOPERAMIDE HYDROCHLORIDE
     Dosage: UNK
     Route: 048
  3. ELUDRIL [ASCORBIC ACID;CHLORHEXIDINE GLUCONATE;TETRACAINE HYDROCHLORID [Concomitant]
     Dosage: UNK
  4. ATROVENT [Concomitant]
     Active Substance: IPRATROPIUM BROMIDE
     Dosage: UNK
  5. CALYPTOL [CINEOLE;PINUS MUGO OIL;ROSMARINUS OFFICINALIS OIL;TERPINEOL; [Concomitant]
  6. HEXAQUINE [Concomitant]
     Active Substance: NIAOULI OIL\QUININE BENZOATE\THIAMINE HYDROCHLORIDE
  7. TETAGRIP [Concomitant]
     Indication: ANTIVIRAL PROPHYLAXIS
     Dosage: UNK UNK,1X
     Dates: start: 20011023, end: 20011023
  8. PENTOXIFYLLINE. [Concomitant]
     Active Substance: PENTOXIFYLLINE
     Indication: PHLEBITIS
     Dosage: UNK UNK,QD
     Route: 048
     Dates: start: 19970101
  9. CYCLO 3 [ASCORBIC ACID;HESPERIDIN METHYL CHALCONE;RUSCUS ACULEATUS] [Concomitant]
     Dosage: UNK
     Route: 023
  10. DUSPATALIN [MEBEVERINE EMBONATE] [Concomitant]
     Active Substance: MEBEVERINE EMBONATE
     Dosage: UNK
  11. NETUX [Concomitant]
     Dosage: DOSE UNIT: 1 U
     Route: 048
  12. PREVISCAN [FLUINDIONE] [Concomitant]
     Active Substance: FLUINDIONE
     Indication: PHLEBITIS
     Dosage: 1 DF
     Route: 048
     Dates: start: 19970101
  13. LASILIX FAIBLE [Suspect]
     Active Substance: FUROSEMIDE
     Indication: ESSENTIAL HYPERTENSION
     Dosage: 1 DF,QD
     Route: 048
     Dates: start: 19980910, end: 20020125
  14. CEFADROXIL. [Suspect]
     Active Substance: CEFADROXIL
     Indication: PRODUCT USED FOR UNKNOWN INDICATION
     Dosage: UNK UNK,UNK
     Route: 048
     Dates: start: 20011201
  15. TOPLEXIL [GUAIFENESIN;OXOMEMAZINE] [Concomitant]
     Active Substance: GUAIFENESIN\OXOMEMAZINE
     Dosage: UNK
  16. DITROPAN [Concomitant]
     Active Substance: OXYBUTYNIN CHLORIDE
     Dosage: DOSE UNIT: 5 MG
     Route: 048
  17. CHLORAMINOPHENE [Suspect]
     Active Substance: CHLORAMBUCIL
     Indication: B-CELL LYMPHOMA
     Dosage: UNK UNK,UNK
     Route: 048
     Dates: start: 19990126
  18. CYTEAL [Concomitant]
     Active Substance: CHLORHEXIDINE GLUCONATE\CHLOROCRESOL\HEXAMIDINE DIISETHIONATE
     Dosage: UNK
  19. DICLOFENAC SODIUM. [Suspect]
     Active Substance: DICLOFENAC SODIUM
     Indication: PRODUCT USED FOR UNKNOWN INDICATION
     Dosage: UNK UNK,UNK
     Route: 048
  20. PENTOXIFYLLINE. [Concomitant]
     Active Substance: PENTOXIFYLLINE
     Indication: DEEP VEIN THROMBOSIS
  21. TOBREX [Concomitant]
     Active Substance: TOBRAMYCIN
     Dosage: UNK
     Route: 031

REACTIONS (2)
  - Lichenoid keratosis [Unknown]
  - Death [Fatal]

NARRATIVE: CASE EVENT DATE: 2002
